FAERS Safety Report 21398663 (Version 1)
Quarter: 2022Q3

REPORT INFORMATION
  Report Type: Spontaneous
  Country: US (occurrence: US)
  Receive Date: 20220930
  Receipt Date: 20220930
  Transmission Date: 20221027
  Serious: No
  Sender: FDA-Public Use
  Company Number: US-PADAGIS-2022PAD00431

PATIENT

DRUGS (1)
  1. ESTRADIOL [Suspect]
     Active Substance: ESTRADIOL
     Indication: Atrophic vulvovaginitis
     Dosage: 1/4 APPLICATOR FULL OF MEDICINE, TWICE A WEEK
     Route: 067
     Dates: start: 20220728

REACTIONS (3)
  - Discomfort [None]
  - Pelvic pain [None]
  - Wrong dose [Unknown]

NARRATIVE: CASE EVENT DATE: 20220728
